FAERS Safety Report 14430840 (Version 1)
Quarter: 2018Q1

REPORT INFORMATION
  Report Type: Spontaneous
  Country: US (occurrence: US)
  Receive Date: 20180123
  Receipt Date: 20180123
  Transmission Date: 20180509
  Serious: No
  Sender: FDA-Public Use
  Company Number: None

PATIENT
  Age: 56 Year
  Sex: Female
  Weight: 121.95 kg

DRUGS (4)
  1. CONTRAVE [Suspect]
     Active Substance: BUPROPION HYDROCHLORIDE\NALTREXONE HYDROCHLORIDE
     Indication: WEIGHT DECREASED
     Dosage: ?          QUANTITY:70 TABLET(S);OTHER FREQUENCY:STEPPED UP;?
     Route: 048
     Dates: start: 20180108, end: 20180110
  2. MULTI VITAMIN [Concomitant]
     Active Substance: VITAMINS
  3. VITAMIN D2 [Concomitant]
     Active Substance: ERGOCALCIFEROL
  4. VITAMIN B12 [Concomitant]
     Active Substance: CYANOCOBALAMIN

REACTIONS (7)
  - Diarrhoea [None]
  - Head discomfort [None]
  - Drug ineffective [None]
  - Insomnia [None]
  - Vomiting [None]
  - Lethargy [None]
  - Headache [None]

NARRATIVE: CASE EVENT DATE: 20180108
